FAERS Safety Report 7670266-3 (Version None)
Quarter: 2011Q3

REPORT INFORMATION
  Report Type: 
  Country: None (occurrence: None)
  Receive Date: 20110809
  Receipt Date: 20110802
  Transmission Date: 20111222
  Serious: Yes (Hospitalization)
  Sender: FDA-Public Use
  Company Number: US-BIOGENIDEC-2011BI014784

PATIENT
  Age: 42 Year
  Sex: Male

DRUGS (1)
  1. AVONEX [Suspect]
     Indication: MULTIPLE SCLEROSIS
     Route: 030
     Dates: start: 20080522

REACTIONS (5)
  - ANKLE FRACTURE [None]
  - PERONEAL NERVE PALSY [None]
  - TENDON RUPTURE [None]
  - FALL [None]
  - LOWER LIMB FRACTURE [None]
